FAERS Safety Report 10219355 (Version 8)
Quarter: 2014Q3

REPORT INFORMATION
  Report Type: Report from Study
  Country: US (occurrence: US)
  Receive Date: 20140605
  Receipt Date: 20140903
  Transmission Date: 20150326
  Serious: Yes (Hospitalization, Other)
  Sender: FDA-Public Use
  Company Number: US-ACTELION-A-NJ2014-98789

PATIENT
  Age: 51 Year
  Sex: Male

DRUGS (3)
  1. TRACLEER [Suspect]
     Active Substance: BOSENTAN\BOSENTAN MONOHYDRATE
     Indication: PULMONARY ARTERIAL HYPERTENSION
     Dosage: 125 MG, BID
     Route: 048
     Dates: start: 2013
  2. ADCIRCA [Concomitant]
     Active Substance: TADALAFIL
  3. VELETRI [Suspect]
     Active Substance: EPOPROSTENOL
     Indication: PULMONARY ARTERIAL HYPERTENSION
     Dosage: 8 NG/KG, PER MIN
     Route: 042
     Dates: start: 20140418

REACTIONS (18)
  - Oedema peripheral [Recovering/Resolving]
  - Pain in jaw [Recovering/Resolving]
  - Dyspnoea [Recovering/Resolving]
  - Right ventricular failure [Recovering/Resolving]
  - Condition aggravated [Recovering/Resolving]
  - Weight decreased [Recovering/Resolving]
  - Oedema [Recovering/Resolving]
  - Atrial fibrillation [Recovering/Resolving]
  - Pleural effusion [Unknown]
  - Localised oedema [Recovering/Resolving]
  - Pericardial effusion [Unknown]
  - Fluid retention [Recovering/Resolving]
  - Erythema [Recovering/Resolving]
  - Pulmonary arterial hypertension [Recovering/Resolving]
  - Left ventricular failure [Recovering/Resolving]
  - Nausea [Recovering/Resolving]
  - Headache [Recovering/Resolving]
  - Influenza like illness [Recovering/Resolving]

NARRATIVE: CASE EVENT DATE: 20140608
